FAERS Safety Report 5869577-3 (Version None)
Quarter: 2008Q3

REPORT INFORMATION
  Report Type: 
  Country: None (occurrence: None)
  Receive Date: 20080828
  Receipt Date: 20080819
  Transmission Date: 20090109
  Serious: Yes (Other)
  Sender: FDA-Public Use
  Company Number: 2008-03080

PATIENT

DRUGS (2)
  1. VELCADE [Suspect]
     Indication: LEUKAEMIA PLASMACYTIC
  2. DEXAMETHASONE TAB [Suspect]
     Indication: LEUKAEMIA PLASMACYTIC
     Dosage: 30 MG

REACTIONS (5)
  - FATIGUE [None]
  - HERPES ZOSTER [None]
  - NEUROTOXICITY [None]
  - PNEUMONIA FUNGAL [None]
  - THROMBOCYTOPENIA [None]
